FAERS Safety Report 6150035-6 (Version None)
Quarter: 2009Q2

REPORT INFORMATION
  Report Type: 
  Country: None (occurrence: None)
  Receive Date: 20090409
  Receipt Date: 20090406
  Transmission Date: 20091009
  Serious: Yes (Hospitalization)
  Sender: FDA-Public Use
  Company Number: B0569304A

PATIENT
  Age: 25 Year
  Sex: Female

DRUGS (2)
  1. AUGMENTIN '125' [Suspect]
     Indication: INFECTION
     Route: 048
  2. PARACETAMOL [Suspect]
     Indication: DRUG USE FOR UNKNOWN INDICATION
     Route: 048

REACTIONS (2)
  - TACHYCARDIA [None]
  - URTICARIA [None]
